FAERS Safety Report 6935665-3 (Version None)
Quarter: 2010Q3

REPORT INFORMATION
  Report Type: 
  Country: None (occurrence: None)
  Receive Date: 20100823
  Receipt Date: 20100812
  Transmission Date: 20110219
  Serious: Yes (Hospitalization, Other)
  Sender: FDA-Public Use
  Company Number: JP-JNJFOC-20100805147

PATIENT
  Age: 60 Year
  Sex: Female

DRUGS (1)
  1. DUROTEP MT [Suspect]
     Indication: PAIN
     Route: 062

REACTIONS (4)
  - FALL [None]
  - FOOT FRACTURE [None]
  - OXYGEN SATURATION DECREASED [None]
  - RESPIRATORY DEPRESSION [None]
